FAERS Safety Report 8358808-6 (Version None)
Quarter: 2012Q2

REPORT INFORMATION
  Report Type: 
  Country: None (occurrence: None)
  Receive Date: 20120514
  Receipt Date: 20120423
  Transmission Date: 20120825
  Serious: Yes (Death)
  Sender: FDA-Public Use
  Company Number: PHHY2010KR48315

PATIENT
  Sex: Male
  Weight: 64 kg

DRUGS (1)
  1. EXJADE [Suspect]
     Indication: MYELODYSPLASTIC SYNDROME
     Dosage: 1250 MG PER DAY
     Route: 048
     Dates: start: 20070427, end: 20100610

REACTIONS (1)
  - DEATH [None]
